FAERS Safety Report 9222781 (Version 1)
Quarter: 2013Q2

REPORT INFORMATION
  Report Type: Spontaneous
  Country: ES (occurrence: ES)
  Receive Date: 20130410
  Receipt Date: 20130410
  Transmission Date: 20140414
  Serious: Yes (Other)
  Sender: FDA-Public Use
  Company Number: ES-PFIZER INC-2013109228

PATIENT
  Age: 77 Year
  Sex: Female

DRUGS (5)
  1. TRANKIMAZIN [Suspect]
     Indication: DEPRESSION
     Dosage: 0.25 MG, 2X/DAY
     Route: 048
     Dates: start: 2000
  2. OMEPRAZOL ^STADA^ [Concomitant]
     Dosage: UNK
  3. CO-DIOVAN [Concomitant]
     Dosage: UNK
  4. ADIRO [Concomitant]
     Dosage: 100 UNK, UNK
  5. METFORMIN [Concomitant]
     Dosage: UNK

REACTIONS (12)
  - Myocardial infarction [Unknown]
  - Cardiac pacemaker insertion [Unknown]
  - Gastric ulcer [Unknown]
  - Disturbance in attention [Unknown]
  - Memory impairment [Unknown]
  - Confusional state [Unknown]
  - Headache [Unknown]
  - Hypertension [Unknown]
  - Blood cholesterol increased [Unknown]
  - Blood glucose increased [Unknown]
  - Sleep apnoea syndrome [Unknown]
  - Generalised anxiety disorder [Unknown]
